FAERS Safety Report 7517158-8 (Version None)
Quarter: 2011Q2

REPORT INFORMATION
  Report Type: 
  Country: None (occurrence: None)
  Receive Date: 20110601
  Receipt Date: 20110525
  Transmission Date: 20111010
  Serious: Yes (Hospitalization, Other)
  Sender: FDA-Public Use
  Company Number: ES-PFIZER INC-2011112319

PATIENT
  Age: 43 Year
  Sex: Male

DRUGS (3)
  1. NEURONTIN [Suspect]
     Dosage: UNK
     Route: 048
     Dates: end: 20110225
  2. ESCITALOPRAM [Suspect]
     Dosage: UNK
     Route: 048
     Dates: end: 20110225
  3. COLME [Suspect]
     Indication: ALCOHOLISM
     Dosage: UNK
     Route: 048
     Dates: end: 20110225

REACTIONS (4)
  - ASPARTATE AMINOTRANSFERASE INCREASED [None]
  - GAMMA-GLUTAMYLTRANSFERASE INCREASED [None]
  - HEPATITIS CHOLESTATIC [None]
  - ALANINE AMINOTRANSFERASE INCREASED [None]
